FAERS Safety Report 4890438-0 (Version None)
Quarter: 2005Q4

REPORT INFORMATION
  Report Type: 
  Country: None (occurrence: None)
  Receive Date: 20051216
  Receipt Date: 20051006
  Transmission Date: 20060501
  Serious: No
  Sender: FDA-Public Use
  Company Number: BDI-007628

PATIENT
  Age: 51 Year
  Sex: Female
  Weight: 61 kg

DRUGS (3)
  1. MULTIHANCE [Suspect]
     Indication: BACK PAIN
     Dosage: 13 ML ONCE IV
     Route: 042
     Dates: start: 20050929, end: 20050929
  2. MULTIHANCE [Suspect]
     Indication: NUCLEAR MAGNETIC RESONANCE IMAGING
     Dosage: 13 ML ONCE IV
     Route: 042
     Dates: start: 20050929, end: 20050929
  3. IBUPROFEN [Concomitant]

REACTIONS (1)
  - NAUSEA [None]
